FAERS Safety Report 16771403 (Version 1)
Quarter: 2019Q3

REPORT INFORMATION
  Report Type: Spontaneous
  Country: US (occurrence: US)
  Receive Date: 20190904
  Receipt Date: 20190904
  Transmission Date: 20191005
  Serious: Yes (Hospitalization, Other)
  Sender: FDA-Public Use
  Company Number: US-FERA PHARMACEUTICALS, LLC-2019PRG00220

PATIENT
  Age: 61 Year
  Sex: Female

DRUGS (15)
  1. DIGOXIN. [Concomitant]
     Active Substance: DIGOXIN
  2. ELIQUIS [Concomitant]
     Active Substance: APIXABAN
  3. VITAMIN D [Concomitant]
     Active Substance: VITAMIN D NOS
  4. REVLIMID [Suspect]
     Active Substance: LENALIDOMIDE
     Indication: PLASMA CELL MYELOMA
     Dosage: 25 MG, ^21 IN 28 DAYS^
     Route: 048
     Dates: start: 20190406
  5. ACYCLOVIR. [Concomitant]
     Active Substance: ACYCLOVIR
  6. METOPROLOL SUCCINATE ER [Concomitant]
     Active Substance: METOPROLOL SUCCINATE
  7. OMEPRAZOLE. [Concomitant]
     Active Substance: OMEPRAZOLE
  8. DECADRON [Suspect]
     Active Substance: DEXAMETHASONE
  9. NORCO [Concomitant]
     Active Substance: ACETAMINOPHEN\HYDROCODONE BITARTRATE
  10. VELCADE [Suspect]
     Active Substance: BORTEZOMIB
  11. LYRICA [Concomitant]
     Active Substance: PREGABALIN
  12. CYCLOBENZAPRINE. [Concomitant]
     Active Substance: CYCLOBENZAPRINE
  13. LASIX [Concomitant]
     Active Substance: FUROSEMIDE
  14. LISINOPRIL. [Concomitant]
     Active Substance: LISINOPRIL
  15. TRAZODONE [Concomitant]
     Active Substance: TRAZODONE HYDROCHLORIDE

REACTIONS (6)
  - Feeling hot [Unknown]
  - Fatigue [Not Recovered/Not Resolved]
  - Blood pressure increased [Unknown]
  - Asthenia [Not Recovered/Not Resolved]
  - Myocardial infarction [Unknown]
  - Hyperhidrosis [Unknown]

NARRATIVE: CASE EVENT DATE: 201904
